FAERS Safety Report 5189920-0 (Version None)
Quarter: 2006Q4

REPORT INFORMATION
  Report Type: 
  Country: None (occurrence: None)
  Receive Date: 20061218
  Receipt Date: 20061206
  Transmission Date: 20070319
  Serious: Yes (Other)
  Sender: FDA-Public Use
  Company Number: GXKR2006FR07994

PATIENT
  Age: 31 Year
  Sex: Male

DRUGS (8)
  1. CLOZAPINE (NGX)(CLOZAPINE) [Suspect]
     Indication: SCHIZOPHRENIA
     Dosage: 200 MG, BID
  2. DESFLURANE (DESFLURANE) [Suspect]
     Indication: ANAESTHESIA
  3. ALPRAZOLAM [Concomitant]
  4. THIOPENTAL SODIUM [Concomitant]
  5. SUFENTANIL CITRATE [Concomitant]
  6. ATRACURIUM BESYLATE [Concomitant]
  7. ROPIVACAINE [Concomitant]
  8. NITROUS OXIDE W/ OXYGEN [Concomitant]

REACTIONS (3)
  - DELAYED RECOVERY FROM ANAESTHESIA [None]
  - DEPRESSED LEVEL OF CONSCIOUSNESS [None]
  - DRUG INTERACTION [None]
